FAERS Safety Report 9349442 (Version 1)
Quarter: 2013Q2

REPORT INFORMATION
  Report Type: Spontaneous
  Country: TR (occurrence: TR)
  Receive Date: 20130614
  Receipt Date: 20130614
  Transmission Date: 20140414
  Serious: Yes (Death)
  Sender: FDA-Public Use
  Company Number: TR-BAXTER-2013BAX021473

PATIENT
  Age: 8 Year
  Sex: Female

DRUGS (9)
  1. HOLOXAN 500 MG IV [Suspect]
     Indication: NEUROBLASTOMA
     Route: 065
  2. ENDOXAN 500 MG. IV [Suspect]
     Indication: NEUROBLASTOMA
     Route: 065
  3. VINCRISTINE [Suspect]
     Indication: NEUROBLASTOMA
     Route: 065
  4. ETOPOSIDE [Suspect]
     Indication: NEUROBLASTOMA
     Route: 065
  5. CISPLATIN [Suspect]
     Indication: NEUROBLASTOMA
     Route: 065
  6. DACARBAZINE [Suspect]
     Indication: NEUROBLASTOMA
     Route: 065
  7. ADRIAMYCIN [Suspect]
     Indication: NEUROBLASTOMA
     Route: 065
  8. CARBOPLATIN [Suspect]
     Indication: NEUROBLASTOMA
     Route: 065
  9. METAIODOBENZYLGUANIDINE [Suspect]
     Indication: NEUROBLASTOMA
     Route: 065

REACTIONS (11)
  - Death [Fatal]
  - Haemorrhage intracranial [Unknown]
  - Metastases to abdominal cavity [Unknown]
  - Mass [Unknown]
  - Graft versus host disease [Unknown]
  - Hypertension [Unknown]
  - Mucosal inflammation [Unknown]
  - Diarrhoea [Unknown]
  - Toxicity to various agents [None]
  - Engraft failure [None]
  - Bone marrow transplant [None]
